FAERS Safety Report 8546592 (Version 4)
Quarter: 2012Q4

REPORT INFORMATION
  Report Type: 
  Country: JP (occurrence: JP)
  Receive Date: 20120504
  Receipt Date: 20120831
  Transmission Date: 20130627
  Serious: No
  Sender: FDA-Public Use
  Company Number: JP-JNJFOC-20120501965

PATIENT
  Age: 8 None
  Sex: Female

DRUGS (4)
  1. TRAMCET [Suspect]
     Indication: PRODUCT USED FOR UNKNOWN INDICATION
     Route: 048
  2. REZALTAS [Suspect]
     Indication: HYPERTENSION
     Route: 048
  3. COAL TAR [Suspect]
     Indication: PRODUCT USED FOR UNKNOWN INDICATION
     Route: 048
  4. LASIX [Concomitant]
     Route: 065

REACTIONS (2)
  - Dysuria [Recovered/Resolved]
  - Oedema [Recovered/Resolved]
